FAERS Safety Report 25616589 (Version 1)
Quarter: 2025Q3

REPORT INFORMATION
  Report Type: Spontaneous
  Country: US (occurrence: None)
  Receive Date: 20250728
  Receipt Date: 20250728
  Transmission Date: 20251021
  Serious: Yes (Death)
  Sender: FDA-CTU
  Company Number: None

PATIENT
  Sex: Male

DRUGS (1)
  1. COPIKTRA [Suspect]
     Active Substance: DUVELISIB
     Indication: Anaplastic large cell lymphoma T- and null-cell types
     Dosage: 75 MG TWICE A DAY ORAL ?
     Route: 048

REACTIONS (1)
  - Death [None]
